FAERS Safety Report 10237058 (Version 2)
Quarter: 2014Q2

REPORT INFORMATION
  Report Type: Spontaneous
  Country: US (occurrence: US)
  Receive Date: 20140613
  Receipt Date: 20140613
  Transmission Date: 20141212
  Serious: Yes (Hospitalization, Other)
  Sender: FDA-Public Use
  Company Number: US-BANPHARM-20142769

PATIENT
  Age: 46 Year
  Sex: Female
  Weight: 62.6 kg

DRUGS (1)
  1. ALEVE LIQUID GELS 220 MG [Suspect]
     Indication: BACK PAIN
     Dosage: 1 DF, Q8H,
     Route: 048
     Dates: start: 201111, end: 201202

REACTIONS (7)
  - Gastric ulcer [Recovered/Resolved]
  - Gastric ulcer perforation [Recovered/Resolved]
  - Intestinal obstruction [Unknown]
  - Dyspepsia [Not Recovered/Not Resolved]
  - Vomiting [Not Recovered/Not Resolved]
  - Incorrect drug administration duration [Recovered/Resolved]
  - Weight decreased [Unknown]
